FAERS Safety Report 6728666-1 (Version None)
Quarter: 2010Q2

REPORT INFORMATION
  Report Type: 
  Country: None (occurrence: None)
  Receive Date: 20100517
  Receipt Date: 20100506
  Transmission Date: 20101027
  Serious: Yes (Hospitalization, Other)
  Sender: FDA-Public Use
  Company Number: GB-WATSON-2010-06329

PATIENT
  Age: 40 Year
  Sex: Male

DRUGS (8)
  1. RISPERIDONE [Suspect]
     Indication: MANIA
     Dosage: 4 MG, DAILY
     Dates: start: 20080301
  2. MIRTAZAPINE [Suspect]
     Indication: DEPRESSIVE SYMPTOM
     Dosage: UNK
  3. MIRTAZAPINE [Suspect]
     Indication: EXTRAPYRAMIDAL DISORDER
  4. ABILIFY [Suspect]
     Indication: BIPOLAR DISORDER
     Dosage: 15 MG, DAILY
     Route: 048
     Dates: start: 20081001
  5. DULOXETINE HYDROCHLORIDE [Suspect]
     Indication: BIPOLAR DISORDER
     Dosage: 60 MG, UNK
  6. QUETIAPINE [Suspect]
     Indication: MOOD SWINGS
  7. SODIUM VALPROATE [Suspect]
     Indication: DRUG USE FOR UNKNOWN INDICATION
  8. LITHIUM CARBONATE [Concomitant]
     Indication: BIPOLAR DISORDER

REACTIONS (5)
  - DEPRESSIVE SYMPTOM [None]
  - EXTRAPYRAMIDAL DISORDER [None]
  - HYPOTHYROIDISM [None]
  - LIVER FUNCTION TEST ABNORMAL [None]
  - METABOLIC SYNDROME [None]
